FAERS Safety Report 15532869 (Version 30)
Quarter: 2021Q4

REPORT INFORMATION
  Report Type: Report from Study
  Country: JP (occurrence: JP)
  Receive Date: 20181019
  Receipt Date: 20211005
  Transmission Date: 20220303
  Serious: Yes (Hospitalization)
  Sender: FDA-Public Use
  Company Number: JP-ROCHE-2200016

PATIENT
  Age: 55 Year
  Sex: Female
  Weight: 45.3 kg

DRUGS (50)
  1. ATEZOLIZUMAB [Suspect]
     Active Substance: ATEZOLIZUMAB
     Indication: Ovarian cancer
     Dosage: DATE OF MOST RECENT DOSE RECEIVED ON 31/JUL/2018
     Route: 041
     Dates: start: 20180619
  2. BEVACIZUMAB [Suspect]
     Active Substance: BEVACIZUMAB
     Indication: Ovarian cancer
     Route: 042
     Dates: start: 20180710
  3. PACLITAXEL [Suspect]
     Active Substance: PACLITAXEL
     Indication: Ovarian cancer
     Route: 042
     Dates: start: 20180619
  4. CARBOPLATIN [Suspect]
     Active Substance: CARBOPLATIN
     Indication: Ovarian cancer
     Dosage: AT A DOSE TO ACHIEVE A TARGET AREA UNDER THE CURVE (AUC) OF 6 MILLIGRAMS PER MILLILITER*MINUTE (MG/M
     Route: 042
     Dates: start: 20180619
  5. PENTOSAN POLYSULFATE SODIUM [Concomitant]
     Active Substance: PENTOSAN POLYSULFATE SODIUM
     Indication: Dry skin
     Dates: start: 20181017
  6. BROTIZOLAM [Concomitant]
     Active Substance: BROTIZOLAM
     Indication: Insomnia
     Dates: start: 20180530
  7. FEXOFENADINE [Concomitant]
     Active Substance: FEXOFENADINE HYDROCHLORIDE
     Indication: Rhinitis allergic
     Dates: start: 20180604
  8. MAGNESIUM OXIDE [Concomitant]
     Active Substance: MAGNESIUM OXIDE
     Indication: Constipation
     Dates: start: 20180607
  9. CELECOXIB [Concomitant]
     Active Substance: CELECOXIB
     Indication: Abdominal pain
     Dates: start: 20180530
  10. CALONAL [Concomitant]
     Active Substance: ACETAMINOPHEN
     Indication: Headache
     Dates: start: 20180601, end: 20181007
  11. CALONAL [Concomitant]
     Active Substance: ACETAMINOPHEN
     Indication: Abdominal pain
  12. SENNOSIDES [Concomitant]
     Active Substance: SENNOSIDES
     Indication: Constipation
     Dates: start: 20180526
  13. SODIUM GUALENATE MONOHYDRATE [Concomitant]
     Active Substance: SODIUM GUALENATE MONOHYDRATE
     Indication: Mucosal infection
     Dates: start: 20180629
  14. SODIUM GUALENATE MONOHYDRATE [Concomitant]
     Active Substance: SODIUM GUALENATE MONOHYDRATE
     Indication: Anal erosion
     Dates: start: 20181011, end: 20181117
  15. RINDERON VG [Concomitant]
     Active Substance: BETAMETHASONE VALERATE\GENTAMICIN SULFATE
     Indication: Dermatitis acneiform
     Dosage: DOSE 0.12 (DOSE UNIT REPORTED AS OTHER)
     Route: 061
     Dates: start: 20180810, end: 20190418
  16. LIDOCAINE [Concomitant]
     Active Substance: LIDOCAINE
     Indication: Anal inflammation
     Route: 061
     Dates: start: 20180823, end: 20181011
  17. OLANZAPINE [Concomitant]
     Active Substance: OLANZAPINE
     Indication: Nausea
     Dates: start: 20180825
  18. EMEND [Concomitant]
     Active Substance: APREPITANT
     Indication: Premedication
     Dates: start: 20180731, end: 20180802
  19. EMEND [Concomitant]
     Active Substance: APREPITANT
     Dates: start: 20180821, end: 20180823
  20. EMEND [Concomitant]
     Active Substance: APREPITANT
     Dates: start: 20181002, end: 20181004
  21. RANITIDINE [Concomitant]
     Active Substance: RANITIDINE
     Indication: Premedication
     Dates: start: 20180731, end: 20180731
  22. RANITIDINE [Concomitant]
     Active Substance: RANITIDINE
     Dates: start: 20180821, end: 20180821
  23. RANITIDINE [Concomitant]
     Active Substance: RANITIDINE
     Dates: start: 20181002, end: 20181002
  24. RANITIDINE [Concomitant]
     Active Substance: RANITIDINE
     Dates: start: 20180710, end: 20190719
  25. DEXAMETHASONE SODIUM PHOSPHATE [Concomitant]
     Active Substance: DEXAMETHASONE SODIUM PHOSPHATE
     Indication: Premedication
     Route: 042
     Dates: start: 20180731, end: 20180731
  26. DEXAMETHASONE SODIUM PHOSPHATE [Concomitant]
     Active Substance: DEXAMETHASONE SODIUM PHOSPHATE
     Route: 042
     Dates: start: 20180821, end: 20180821
  27. DEXAMETHASONE SODIUM PHOSPHATE [Concomitant]
     Active Substance: DEXAMETHASONE SODIUM PHOSPHATE
     Route: 042
     Dates: start: 20181002, end: 20181002
  28. POLARAMINE [Concomitant]
     Active Substance: DEXCHLORPHENIRAMINE MALEATE
     Indication: Premedication
     Dates: start: 20180731, end: 20180731
  29. POLARAMINE [Concomitant]
     Active Substance: DEXCHLORPHENIRAMINE MALEATE
     Dates: start: 20180821, end: 20180821
  30. POLARAMINE [Concomitant]
     Active Substance: DEXCHLORPHENIRAMINE MALEATE
     Dates: start: 20181002, end: 20181002
  31. GRANISETRON [Concomitant]
     Active Substance: GRANISETRON
     Indication: Premedication
     Dates: start: 20180731, end: 20180731
  32. GRANISETRON [Concomitant]
     Active Substance: GRANISETRON
     Dates: start: 20180821, end: 20180821
  33. GRANISETRON [Concomitant]
     Active Substance: GRANISETRON
     Dates: start: 20181002, end: 20181002
  34. KETOPROFEN [Concomitant]
     Active Substance: KETOPROFEN
     Indication: Peripheral sensory neuropathy
     Dates: start: 20181002
  35. HERBALS [Concomitant]
     Active Substance: HERBALS
     Dates: start: 20180530
  36. FELBINAC PAP [Concomitant]
     Indication: Myalgia
     Dates: start: 20180622
  37. DEXAMETHASONE [Concomitant]
     Active Substance: DEXAMETHASONE
     Indication: Stomatitis
     Route: 061
     Dates: start: 20181013, end: 20181117
  38. DEXAMETHASONE [Concomitant]
     Active Substance: DEXAMETHASONE
     Indication: Prophylaxis
  39. NEXIUM [Concomitant]
     Active Substance: ESOMEPRAZOLE MAGNESIUM
     Dates: start: 20181017, end: 20190324
  40. AZUNOL [Concomitant]
     Indication: Anal erosion
     Dates: start: 20181011, end: 20181117
  41. LANSOPRAZOLE [Concomitant]
     Active Substance: LANSOPRAZOLE
     Dates: start: 20180525, end: 20180731
  42. VIBRAMYCIN [Concomitant]
     Active Substance: DOXYCYCLINE
     Indication: Dermatitis acneiform
     Dates: start: 20180724, end: 20180731
  43. SITAFLOXACIN [Concomitant]
     Active Substance: SITAFLOXACIN
     Indication: Cystitis
     Dates: start: 20180905, end: 20180907
  44. SULFAMETHOXAZOLE\TRIMETHOPRIM [Concomitant]
     Active Substance: SULFAMETHOXAZOLE\TRIMETHOPRIM
     Indication: Adrenal insufficiency
     Dates: start: 20190724
  45. LEVOTHYROXINE [Concomitant]
     Active Substance: LEVOTHYROXINE
     Indication: Hypothyroidism
     Dates: start: 20181128
  46. GASCON (JAPAN) [Concomitant]
     Dates: start: 20201113
  47. MAGNESIUM OXIDE [Concomitant]
     Active Substance: MAGNESIUM OXIDE
     Dates: start: 20201113
  48. BIO-THREE [Concomitant]
     Active Substance: HERBALS
     Dates: start: 20201113
  49. CALCIUM POLYCARBOPHIL [Concomitant]
     Active Substance: CALCIUM POLYCARBOPHIL
     Dates: start: 20201113
  50. PRIMPERAN [Concomitant]
     Active Substance: METOCLOPRAMIDE HYDROCHLORIDE
     Indication: Nausea
     Dates: start: 20181011, end: 20181011

REACTIONS (4)
  - Febrile neutropenia [Recovered/Resolved]
  - Colitis [Recovering/Resolving]
  - Hypothyroidism [Not Recovered/Not Resolved]
  - Hyperthyroidism [Recovered/Resolved]

NARRATIVE: CASE EVENT DATE: 20180820
